FAERS Safety Report 9159121 (Version 1)
Quarter: 2013Q1

REPORT INFORMATION
  Report Type: Spontaneous
  Country: US (occurrence: US)
  Receive Date: 20130313
  Receipt Date: 20130313
  Transmission Date: 20140127
  Serious: No
  Sender: FDA-Public Use
  Company Number: US-BIOGENIDEC-2013BI023185

PATIENT
  Sex: Female

DRUGS (1)
  1. TYSABRI [Suspect]
     Indication: MULTIPLE SCLEROSIS
     Route: 042
     Dates: start: 20100826

REACTIONS (6)
  - Memory impairment [Unknown]
  - Multiple allergies [Unknown]
  - Drug effect delayed [Unknown]
  - Pain [Unknown]
  - Fear [Unknown]
  - Multiple sclerosis relapse [Unknown]
